FAERS Safety Report 19886210 (Version 1)
Quarter: 2021Q3

REPORT INFORMATION
  Report Type: Spontaneous
  Country: US (occurrence: US)
  Receive Date: 20210928
  Receipt Date: 20210928
  Transmission Date: 20211014
  Serious: Yes (Other)
  Sender: FDA-Public Use
  Company Number: NVSC2021US216264

PATIENT
  Age: 31 Year
  Sex: Male

DRUGS (10)
  1. METHYLPREDNISOLONE. [Concomitant]
     Active Substance: METHYLPREDNISOLONE
     Indication: HYPOXIA
     Dosage: UNK
     Route: 065
  2. EPINEPHRINE. [Suspect]
     Active Substance: EPINEPHRINE
     Indication: HYPOTENSION
     Dosage: UNK
     Route: 065
  3. PHENYLEPHRINE [Suspect]
     Active Substance: PHENYLEPHRINE HYDROCHLORIDE
     Indication: HYPOTENSION
     Dosage: UNK
     Route: 065
  4. CHLOROQUINE. [Concomitant]
     Active Substance: CHLOROQUINE
     Indication: COVID-19
     Dosage: UNK
     Route: 065
  5. VITAMIN C [Concomitant]
     Active Substance: ASCORBIC ACID
     Indication: COVID-19
     Dosage: UNK
     Route: 065
  6. HEPARIN [Concomitant]
     Active Substance: HEPARIN SODIUM
     Indication: THROMBOSIS PROPHYLAXIS
     Dosage: UNK
     Route: 065
  7. NOREPINEPHRINE. [Suspect]
     Active Substance: NOREPINEPHRINE
     Indication: HYPOTENSION
     Dosage: UNK
     Route: 065
  8. THIAMINE. [Concomitant]
     Active Substance: THIAMINE
     Indication: COVID-19
     Dosage: UNK
     Route: 065
  9. ANAKINRA [Concomitant]
     Active Substance: ANAKINRA
     Indication: COVID-19
     Dosage: UNK
     Route: 065
  10. AMIODARONE [Concomitant]
     Active Substance: AMIODARONE
     Indication: ATRIAL FIBRILLATION
     Dosage: UNK
     Route: 065

REACTIONS (1)
  - Dry gangrene [Recovered/Resolved]
